FAERS Safety Report 12217650 (Version 1)
Quarter: 2016Q1

REPORT INFORMATION
  Report Type: Report from Study
  Country: CA (occurrence: CA)
  Receive Date: 20160329
  Receipt Date: 20160329
  Transmission Date: 20160526
  Serious: Yes (Hospitalization)
  Sender: FDA-Public Use
  Company Number: CA-JNJFOC-20160319385

PATIENT
  Age: 67 Year
  Sex: Male
  Weight: 61.69 kg

DRUGS (21)
  1. PREDNISONE. [Concomitant]
     Active Substance: PREDNISONE
     Dosage: TAKEN IN MORNING
     Route: 065
  2. OXYCODONE AND ACETAMINOPHEN [Concomitant]
     Active Substance: ACETAMINOPHEN\OXYCODONE HYDROCHLORIDE
     Indication: PAIN
     Dosage: 5/325 MG- ONE TABLET EVERY 4 TO 6 HOURSE AS NEEDED FOR PAIN
     Route: 065
  3. POTASSIUM [Concomitant]
     Active Substance: POTASSIUM
     Dosage: 1500 MG
     Route: 065
  4. PRAMIPEXOLE. [Concomitant]
     Active Substance: PRAMIPEXOLE
     Route: 065
  5. SIMPONI [Suspect]
     Active Substance: GOLIMUMAB
     Indication: COLITIS ULCERATIVE
     Route: 058
     Dates: start: 20150514
  6. ASA [Concomitant]
     Active Substance: ASPIRIN
     Dosage: TAKEN EVERY MORNING
     Route: 065
  7. APO-METOPROLOL [Concomitant]
     Active Substance: METOPROLOL
     Dosage: 1/2 TABLET EVERY 8 HOURS
     Route: 048
  8. LEVOTHYROXINE SODIUM. [Concomitant]
     Active Substance: LEVOTHYROXINE SODIUM
     Route: 048
  9. MESTINON [Concomitant]
     Active Substance: PYRIDOSTIGMINE BROMIDE
     Route: 065
  10. MIDODRINE HCL [Concomitant]
     Active Substance: MIDODRINE HYDROCHLORIDE
     Route: 065
  11. TAMSULOSIN HYDROCHLORIDE. [Concomitant]
     Active Substance: TAMSULOSIN HYDROCHLORIDE
     Route: 065
  12. PMS CLONAZEPAM [Concomitant]
     Dosage: TAKEN EVERY NIGHT AT BEDTIME
     Route: 065
  13. TYLENOL [Concomitant]
     Active Substance: ACETAMINOPHEN
     Route: 065
  14. SIMPONI [Suspect]
     Active Substance: GOLIMUMAB
     Indication: COLITIS ULCERATIVE
     Dosage: DOSE GIVEN APPROXIMATELY ON 19-FEB-2016
     Route: 058
     Dates: start: 201602
  15. NOVO-LOPERAMIDE [Concomitant]
     Route: 065
  16. ENTACAPONE. [Concomitant]
     Active Substance: ENTACAPONE
     Dosage: TAKEN AT 10 AM, 1 PM, 4PM
     Route: 065
  17. VENLAFAXINE XR [Concomitant]
     Active Substance: VENLAFAXINE HYDROCHLORIDE
     Route: 065
  18. PMS-ZOPICLONE [Concomitant]
     Dosage: TAKEN EVERY NIGHT A BEDTIME AS REQUIRED
     Route: 065
  19. MEZAVANT [Concomitant]
     Active Substance: MESALAMINE
     Route: 065
  20. CLONAZEPAM-R [Concomitant]
     Dosage: TAKEN AS REQUIRED
     Route: 065
  21. LEVODOPA-CARBIDOPA [Concomitant]
     Active Substance: CARBIDOPA\LEVODOPA
     Dosage: 100/25 MG, AT 7 AM, 1 PM AND 4 PM.
     Route: 065

REACTIONS (2)
  - Cystitis [Recovered/Resolved]
  - Parkinson^s disease [Recovered/Resolved]

NARRATIVE: CASE EVENT DATE: 201602
